FAERS Safety Report 23790589 (Version 1)
Quarter: 2024Q2

REPORT INFORMATION
  Report Type: Spontaneous
  Country: GB (occurrence: GB)
  Receive Date: 20240427
  Receipt Date: 20240427
  Transmission Date: 20240716
  Serious: Yes (Life-Threatening)
  Sender: FDA-Public Use
  Company Number: None

PATIENT
  Age: 60 Year
  Sex: Male

DRUGS (12)
  1. MYCOPHENOLATE MOFETIL [Suspect]
     Active Substance: MYCOPHENOLATE MOFETIL
     Indication: Eosinophilic granulomatosis with polyangiitis
  2. ALBUTEROL [Concomitant]
     Active Substance: ALBUTEROL
     Indication: Wheezing
     Dosage: DOSE INHALER CFC FREE TAKE ONE OR TWO PUFFS UPTO FOUR TIMES A DAY
     Route: 055
  3. BECLOMETASONE, FORMOTEROL, GLYCOPYRRONIUM [Concomitant]
     Dosage: 172 MICROGRAMS / DOSE / 5 MICROGRAMS / DOSE / 9 MICROGRAMS / DOSE INHALER PUFFS
  4. PREDNISOLONE [Concomitant]
     Active Substance: PREDNISOLONE
     Dosage: OD AS DIRECTED BY HOSPITAL
  5. ALENDRONIC ACID [Concomitant]
     Active Substance: ALENDRONIC ACID
     Dosage: AS DIRECTED BY HOSPITAL - TAKES ON A SATURDAY
  6. ACETAMINOPHEN [Concomitant]
     Active Substance: ACETAMINOPHEN
     Indication: Pain
     Dosage: 1 TO 2 TABLETS UP TO FOUR TIMES DAILY
  7. GABAPENTIN [Concomitant]
     Active Substance: GABAPENTIN
     Dosage: AS DIRECTED BY HOSPITAL
  8. SERTRALINE [Concomitant]
     Active Substance: SERTRALINE HYDROCHLORIDE
  9. NEBIVOLOL [Concomitant]
     Active Substance: NEBIVOLOL
  10. OMEPRAZOLE [Concomitant]
     Active Substance: OMEPRAZOLE
  11. MONTELUKAST [Concomitant]
     Active Substance: MONTELUKAST SODIUM
     Dosage: AT NIGHT
  12. FOLIC ACID [Concomitant]
     Active Substance: FOLIC ACID
     Dosage: AS DIRECTED BY HOSPITAL

REACTIONS (1)
  - Pulmonary embolism [Recovered/Resolved with Sequelae]
